FAERS Safety Report 6502024-7 (Version None)
Quarter: 2009Q4

REPORT INFORMATION
  Report Type: 
  Country: None (occurrence: None)
  Receive Date: 20091216
  Receipt Date: 20091208
  Transmission Date: 20100525
  Serious: Yes (Other)
  Sender: FDA-Public Use
  Company Number: JP-ROCHE-674049

PATIENT

DRUGS (3)
  1. BEVACIZUMAB [Suspect]
     Route: 065
  2. FLUOROURACIL [Suspect]
     Route: 065
  3. FOLINIC ACID [Suspect]
     Route: 065

REACTIONS (2)
  - INTESTINAL ISCHAEMIA [None]
  - MELAENA [None]
